FAERS Safety Report 10417645 (Version 1)
Quarter: 2014Q3

REPORT INFORMATION
  Report Type: Spontaneous
  Country: US (occurrence: None)
  Receive Date: 20140828
  Receipt Date: 20140828
  Transmission Date: 20150326
  Serious: Yes (Hospitalization)
  Sender: FDA-Public Use
  Company Number: None

PATIENT
  Age: 18 Year
  Sex: Female
  Weight: 121.11 kg

DRUGS (2)
  1. LURASIDONE HCL [Suspect]
     Active Substance: LURASIDONE
     Indication: SCHIZOPHRENIA
     Route: 048
     Dates: start: 20140616
  2. AMBIEN [Concomitant]
     Active Substance: ZOLPIDEM TARTRATE

REACTIONS (4)
  - Aggression [None]
  - Agitation [None]
  - Hallucination, auditory [None]
  - Condition aggravated [None]

NARRATIVE: CASE EVENT DATE: 20140703
